FAERS Safety Report 9625484 (Version 1)
Quarter: 2013Q4

REPORT INFORMATION
  Report Type: Spontaneous
  Country: US (occurrence: US)
  Receive Date: 20131016
  Receipt Date: 20131016
  Transmission Date: 20140711
  Serious: No
  Sender: FDA-Public Use
  Company Number: US-PFIZER INC-2013292836

PATIENT
  Age: 21 Year
  Sex: Male
  Weight: 63.49 kg

DRUGS (2)
  1. ADVIL [Suspect]
     Indication: MYALGIA
     Dosage: UNK
     Dates: start: 20131010
  2. ADVIL [Suspect]
     Indication: PAIN IN EXTREMITY

REACTIONS (1)
  - Urticaria [Not Recovered/Not Resolved]
